FAERS Safety Report 7395138-3 (Version None)
Quarter: 2011Q2

REPORT INFORMATION
  Report Type: 
  Country: None (occurrence: None)
  Receive Date: 20110405
  Receipt Date: 20110323
  Transmission Date: 20111010
  Serious: Yes (Other)
  Sender: FDA-Public Use
  Company Number: PHHY2011US24813

PATIENT
  Sex: Female

DRUGS (13)
  1. LEXAPRO [Concomitant]
  2. CITRACAL [Concomitant]
  3. TOVIAS [Concomitant]
  4. CENTRUM SILVER [Concomitant]
  5. VITAMIN D [Concomitant]
  6. NAMENDA [Concomitant]
  7. VITAMIN E [Concomitant]
  8. NEXIUM [Concomitant]
  9. ASCORBIC ACID [Concomitant]
  10. THYROXINE [Concomitant]
  11. PREDNISONE [Concomitant]
  12. DIOVAN [Suspect]
     Dosage: 160 MG
  13. DILTIAZEM HYDROCHLORIDE [Concomitant]

REACTIONS (15)
  - LOSS OF CONSCIOUSNESS [None]
  - EYE PAIN [None]
  - PNEUMONIA [None]
  - COUGH [None]
  - SOMNOLENCE [None]
  - JOINT SWELLING [None]
  - ASTHENIA [None]
  - NASOPHARYNGITIS [None]
  - FATIGUE [None]
  - DIZZINESS [None]
  - MUSCLE SPASMS [None]
  - OEDEMA PERIPHERAL [None]
  - DIARRHOEA [None]
  - DRY MOUTH [None]
  - THIRST [None]
